FAERS Safety Report 25477866 (Version 1)
Quarter: 2025Q2

REPORT INFORMATION
  Report Type: Spontaneous
  Country: IT (occurrence: IT)
  Receive Date: 20250625
  Receipt Date: 20250625
  Transmission Date: 20250716
  Serious: Yes (Other)
  Sender: MYLAN
  Company Number: IT-MYLANLABS-2025M1053303

PATIENT
  Age: 7 Year
  Sex: Male

DRUGS (3)
  1. ACETAMINOPHEN [Suspect]
     Active Substance: ACETAMINOPHEN
     Indication: Musculoskeletal pain
  2. PREGABALIN [Suspect]
     Active Substance: PREGABALIN
     Indication: Musculoskeletal pain
  3. MAGNESIUM [Suspect]
     Active Substance: MAGNESIUM
     Indication: Musculoskeletal pain

REACTIONS (1)
  - Therapy non-responder [Unknown]
